FAERS Safety Report 6173737-4 (Version None)
Quarter: 2009Q2

REPORT INFORMATION
  Report Type: 
  Country: None (occurrence: None)
  Receive Date: 20090430
  Receipt Date: 20090427
  Transmission Date: 20091009
  Serious: Yes (Death, Hospitalization)
  Sender: FDA-Public Use
  Company Number: PHHY2009BR12868

PATIENT
  Age: 10 Year
  Sex: Male

DRUGS (4)
  1. TEGRETOL [Suspect]
     Indication: EPILEPSY
     Dosage: 400 MG, BID
     Route: 048
  2. TEGRETOL [Suspect]
     Dosage: 400 MG, TID
     Route: 048
  3. FRISIUM [Concomitant]
     Indication: EPILEPSY
     Dosage: 2 TABLETS DAILY
     Route: 048
     Dates: start: 20050101
  4. CHEMOTHERAPEUTICS NOS [Concomitant]

REACTIONS (2)
  - ACUTE MYELOID LEUKAEMIA [None]
  - ORGAN FAILURE [None]
